FAERS Safety Report 8180143 (Version 3)
Quarter: 2020Q1

REPORT INFORMATION
  Report Type: Spontaneous
  Country: BR (occurrence: BR)
  Receive Date: 20111013
  Receipt Date: 20200310
  Transmission Date: 20200409
  Serious: Yes (Other)
  Sender: FDA-Public Use
  Company Number: BR-PFIZER INC-2011239718

PATIENT
  Age: 47 Year
  Sex: Female

DRUGS (1)
  1. XALATAN [Suspect]
     Active Substance: LATANOPROST
     Dosage: UNK
     Route: 047

REACTIONS (5)
  - Poor quality product administered [Unknown]
  - Hypersensitivity [Unknown]
  - Product storage error [Unknown]
  - Headache [Unknown]
  - Intraocular pressure increased [Unknown]
